FAERS Safety Report 22096276 (Version 1)
Quarter: 2023Q1

REPORT INFORMATION
  Report Type: Spontaneous
  Country: US (occurrence: None)
  Receive Date: 20230315
  Receipt Date: 20230315
  Transmission Date: 20230417
  Serious: No
  Sender: FDA-Public Use
  Company Number: US-Axsome Therapeutics, Inc.-AXS202301-000065

PATIENT
  Age: 49 Year
  Sex: Female

DRUGS (1)
  1. AUVELITY [Suspect]
     Active Substance: BUPROPION HYDROCHLORIDE\DEXTROMETHORPHAN HYDROBROMIDE
     Indication: Depression
     Dosage: 45 MG DEXTRO 105 MG BRUPROPRIONE TWO TIMES A DAY
     Route: 048
     Dates: start: 20221227, end: 20230110

REACTIONS (2)
  - Irritability [Unknown]
  - Drug ineffective [Unknown]
